FAERS Safety Report 10583910 (Version 1)
Quarter: 2014Q4

REPORT INFORMATION
  Report Type: Spontaneous
  Country: US (occurrence: None)
  Receive Date: 20141113
  Receipt Date: 20141113
  Transmission Date: 20150529
  Serious: Yes (Life-Threatening)
  Sender: FDA-Public Use
  Company Number: None

PATIENT
  Age: 58 Year
  Sex: Female
  Weight: 45.36 kg

DRUGS (18)
  1. OMETIGA [Concomitant]
  2. PROTONIX [Concomitant]
     Active Substance: PANTOPRAZOLE SODIUM
  3. METOPROLOL TARTRATE. [Concomitant]
     Active Substance: METOPROLOL TARTRATE
  4. METOPROLOL TARTRATE. [Concomitant]
     Active Substance: METOPROLOL TARTRATE
  5. LACTULOSE. [Concomitant]
     Active Substance: LACTULOSE
  6. NEURONTIN [Suspect]
     Active Substance: GABAPENTIN
     Indication: NEURALGIA
  7. NEURONTIN [Concomitant]
     Active Substance: GABAPENTIN
  8. AMITIZA [Concomitant]
     Active Substance: LUBIPROSTONE
  9. MULTIVITAMINS [Concomitant]
     Active Substance: VITAMINS
  10. CYMBALTA [Suspect]
     Active Substance: DULOXETINE HYDROCHLORIDE
     Route: 048
  11. KEPPRA [Suspect]
     Active Substance: LEVETIRACETAM
     Indication: SEIZURE
  12. BACLOFEN. [Concomitant]
     Active Substance: BACLOFEN
  13. BACLOFEN. [Concomitant]
     Active Substance: BACLOFEN
  14. FENTANYL TRANSDERMAL SYSTEM [Concomitant]
     Active Substance: FENTANYL
  15. VOLTAREN [Concomitant]
     Active Substance: DICLOFENAC SODIUM
  16. LACTULOSE. [Concomitant]
     Active Substance: LACTULOSE
  17. VOLTAREN [Concomitant]
     Active Substance: DICLOFENAC SODIUM
  18. ASPIRIN. [Concomitant]
     Active Substance: ASPIRIN

REACTIONS (2)
  - Intentional self-injury [None]
  - Sleep disorder [None]

NARRATIVE: CASE EVENT DATE: 201308
